FAERS Safety Report 9967650 (Version 2)
Quarter: 2014Q1

REPORT INFORMATION
  Report Type: Report from Study
  Country: PR (occurrence: PR)
  Receive Date: 20140305
  Receipt Date: 20140305
  Transmission Date: 20141002
  Serious: No
  Sender: FDA-Public Use
  Company Number: PR-ABBVIE-12P-131-0917228-00

PATIENT
  Sex: Female
  Weight: 90.8 kg

DRUGS (7)
  1. HUMIRA [Suspect]
     Indication: PSORIATIC ARTHROPATHY
     Route: 058
     Dates: start: 2012, end: 2013
  2. HUMIRA [Suspect]
     Indication: RHEUMATOID ARTHRITIS
  3. LOSARTAN [Concomitant]
     Indication: HYPERTENSION
     Route: 048
  4. METFORMIN [Concomitant]
     Indication: DIABETES MELLITUS
     Route: 048
  5. HUMALOG [Concomitant]
     Route: 058
  6. PLAQUENIL [Concomitant]
     Indication: PSORIASIS
     Route: 048
  7. FOLIC ACID [Concomitant]
     Indication: VITAMIN SUPPLEMENTATION
     Route: 048

REACTIONS (2)
  - Drug ineffective [Recovered/Resolved]
  - Sinusitis [Recovered/Resolved]
